FAERS Safety Report 15438142 (Version 1)
Quarter: 2018Q3

REPORT INFORMATION
  Report Type: Spontaneous
  Country: MX (occurrence: MX)
  Receive Date: 20180928
  Receipt Date: 20180928
  Transmission Date: 20181010
  Serious: Yes (Other)
  Sender: FDA-Public Use
  Company Number: MX-TOLMAR, INC.-2018MX009317

PATIENT

DRUGS (2)
  1. SAYANA [Suspect]
     Active Substance: MEDROXYPROGESTERONE
     Indication: ENDOMETRIOSIS
     Dosage: UNK
     Route: 065
     Dates: start: 20180828
  2. ELIGARD [Suspect]
     Active Substance: LEUPROLIDE ACETATE
     Indication: ENDOMETRIOSIS
     Dosage: UNK,UNK
     Route: 030
     Dates: start: 20180809, end: 20180809

REACTIONS (4)
  - Menorrhagia [Not Recovered/Not Resolved]
  - Incorrect route of drug administration [Unknown]
  - Off label use [Unknown]
  - Drug interaction [Unknown]

NARRATIVE: CASE EVENT DATE: 20180809
